FAERS Safety Report 20560420 (Version 1)
Quarter: 2022Q1

REPORT INFORMATION
  Report Type: Spontaneous
  Country: US (occurrence: None)
  Receive Date: 20220307
  Receipt Date: 20220307
  Transmission Date: 20220423
  Serious: No
  Sender: FDA-Public Use
  Company Number: 2022A065246

PATIENT
  Age: 774 Month
  Sex: Female
  Weight: 78.5 kg

DRUGS (1)
  1. SYMBICORT [Suspect]
     Active Substance: BUDESONIDE\FORMOTEROL FUMARATE DIHYDRATE
     Indication: Asthma
     Dosage: TWO INHALATIONS, TWICE DAILY
     Route: 055

REACTIONS (5)
  - Dyspnoea [Unknown]
  - Carpal tunnel syndrome [Recovering/Resolving]
  - Oropharyngeal pain [Not Recovered/Not Resolved]
  - Device use issue [Unknown]
  - Device delivery system issue [Unknown]

NARRATIVE: CASE EVENT DATE: 20220101
